FAERS Safety Report 18763568 (Version 1)
Quarter: 2021Q1

REPORT INFORMATION
  Report Type: Spontaneous
  Country: JP (occurrence: JP)
  Receive Date: 20210120
  Receipt Date: 20210120
  Transmission Date: 20210419
  Serious: Yes (Other)
  Sender: FDA-Public Use
  Company Number: JP-BAYER-2021-028687

PATIENT
  Age: 14 Year
  Sex: Female

DRUGS (1)
  1. YAZ [Suspect]
     Active Substance: DROSPIRENONE\ETHINYL ESTRADIOL
     Dosage: UNK
     Route: 048
     Dates: start: 20201215

REACTIONS (10)
  - Initial insomnia [None]
  - Angina pectoris [None]
  - Pain in extremity [None]
  - Abdominal pain [Recovered/Resolved]
  - Musculoskeletal chest pain [None]
  - Dyspnoea [None]
  - Headache [Recovered/Resolved]
  - Myalgia [None]
  - Mood altered [Recovered/Resolved]
  - Dysmenorrhoea [None]

NARRATIVE: CASE EVENT DATE: 202012
